FAERS Safety Report 15834763 (Version 2)
Quarter: 2019Q2

REPORT INFORMATION
  Report Type: Spontaneous
  Country: FR (occurrence: FR)
  Receive Date: 20190116
  Receipt Date: 20190409
  Transmission Date: 20190711
  Serious: Yes (Death, Life-Threatening, Other)
  Sender: FDA-Public Use
  Company Number: FR-ALLERGAN-1902060US

PATIENT
  Sex: Female

DRUGS (8)
  1. TERCIAN [Suspect]
     Active Substance: CYAMEMAZINE
     Indication: PRODUCT USED FOR UNKNOWN INDICATION
     Dosage: 50MG/5ML
     Route: 042
     Dates: start: 201008
  2. CITALOPRAM HYDROBROMIDE - BP [Suspect]
     Active Substance: CITALOPRAM HYDROBROMIDE
     Indication: PRODUCT USED FOR UNKNOWN INDICATION
     Dosage: 0.5 DF OF 20MG TABLET, QD
     Route: 048
     Dates: start: 200902, end: 20100813
  3. GARDASIL [Suspect]
     Active Substance: HUMAN PAPILLOMAVIRUS QUADRIVALENT (TYPES 6, 11, 16, AND 18) VACCINE, RECOMBINANT
     Indication: IMMUNISATION
     Dosage: UNK
     Route: 030
     Dates: start: 20081024, end: 20081024
  4. RISPERDAL [Suspect]
     Active Substance: RISPERIDONE
     Indication: PRODUCT USED FOR UNKNOWN INDICATION
     Dosage: UNK
     Route: 042
     Dates: start: 201008
  5. GARDASIL [Suspect]
     Active Substance: HUMAN PAPILLOMAVIRUS QUADRIVALENT (TYPES 6, 11, 16, AND 18) VACCINE, RECOMBINANT
     Dosage: UNK
     Route: 030
     Dates: start: 20081219, end: 20081219
  6. GARDASIL [Suspect]
     Active Substance: HUMAN PAPILLOMAVIRUS QUADRIVALENT (TYPES 6, 11, 16, AND 18) VACCINE, RECOMBINANT
     Dosage: UNK
     Route: 030
     Dates: start: 20090424, end: 20090424
  7. TEMESTA [Concomitant]
     Indication: PRODUCT USED FOR UNKNOWN INDICATION
     Dosage: UNK
     Route: 048
     Dates: start: 201008
  8. REPEVAX [Concomitant]
     Active Substance: DIPHTHERIA AND TETANUS TOXOIDS AND ACELLULAR PERTUSSIS ADSORBED AND INACTIVATED POLIOVIRUS VACCINE
     Indication: IMMUNISATION
     Route: 065
     Dates: start: 20100716, end: 20100716

REACTIONS (34)
  - Atelectasis [Fatal]
  - Mood altered [Unknown]
  - Sepsis [Fatal]
  - Cardiac failure [Fatal]
  - Weight decreased [Unknown]
  - Abdominal pain [Unknown]
  - Neuroleptic malignant syndrome [Fatal]
  - Status epilepticus [Fatal]
  - Malaise [Recovered/Resolved]
  - Encephalitis [Fatal]
  - Nausea [Recovered/Resolved]
  - Amnesia [Unknown]
  - Negative thoughts [Unknown]
  - Paraesthesia [Unknown]
  - Depression [Unknown]
  - Hot flush [Unknown]
  - Confusional state [Unknown]
  - Psychotic disorder [Unknown]
  - Loss of consciousness [Unknown]
  - Decreased appetite [Unknown]
  - Fatigue [Unknown]
  - Gait disturbance [Unknown]
  - Myalgia [Unknown]
  - Pseudomonas infection [Fatal]
  - Dysstasia [Unknown]
  - Presyncope [Recovered/Resolved]
  - Encephalitis autoimmune [Fatal]
  - Respiratory distress [Fatal]
  - Headache [Unknown]
  - Pyrexia [Unknown]
  - Anxiety [Unknown]
  - Alopecia [Unknown]
  - Behaviour disorder [Unknown]
  - Syncope [Unknown]

NARRATIVE: CASE EVENT DATE: 20090227
